FAERS Safety Report 5321421-9 (Version None)
Quarter: 2007Q2

REPORT INFORMATION
  Report Type: 
  Country: None (occurrence: None)
  Receive Date: 20070510
  Receipt Date: 20070502
  Transmission Date: 20071010
  Serious: Yes (Hospitalization)
  Sender: FDA-Public Use
  Company Number: NO-GENENTECH-240947

PATIENT
  Sex: Female

DRUGS (10)
  1. MABTHERA [Suspect]
     Indication: RHEUMATOID ARTHRITIS
     Dosage: 1000 MG, UNK
     Route: 042
     Dates: start: 20040907
  2. METHOTREXATE [Suspect]
     Indication: RHEUMATOID ARTHRITIS
     Dosage: 15 MG, 1/WEEK
     Route: 048
     Dates: start: 20041101
  3. PREDNISOLONE [Concomitant]
     Indication: RHEUMATOID ARTHRITIS
     Dosage: 12.5 MG, UNK
  4. SALBUTAMOL [Concomitant]
     Indication: ASTHMA
  5. CALCIUM 600 +D [Concomitant]
     Indication: OSTEOPOROSIS
  6. WARFARIN SODIUM [Concomitant]
     Indication: PULMONARY EMBOLISM
     Dosage: 2.5 MG, UNK
     Route: 048
     Dates: start: 20060801
  7. IPRATROPIUM INHALER [Concomitant]
     Indication: ASTHMA
  8. TERBUTALINE SULFATE [Concomitant]
     Indication: DRUG USE FOR UNKNOWN INDICATION
     Dosage: 0.5 MG, UNK
  9. FLUTICASONE PROPIONATE [Concomitant]
     Indication: ASTHMA
     Dosage: 25/50
     Route: 050
  10. FOSAMAX [Concomitant]
     Indication: OSTEOPOROSIS
     Dosage: 70 MG, 1/WEEK
     Route: 048

REACTIONS (2)
  - PNEUMONIA [None]
  - PULMONARY FIBROSIS [None]
